FAERS Safety Report 5064045-3 (Version None)
Quarter: 2006Q3

REPORT INFORMATION
  Report Type: 
  Country: None (occurrence: None)
  Receive Date: 20060706
  Receipt Date: 20060320
  Transmission Date: 20061208
  Serious: No
  Sender: FDA-Public Use
  Company Number: 200611681BWH

PATIENT
  Sex: Male

DRUGS (10)
  1. LEVITRA [Suspect]
     Indication: DRUG USE FOR UNKNOWN INDICATION
     Dosage: ORAL
     Route: 048
  2. TOPROL-XL [Concomitant]
  3. SOTALOL HYDROCHLORIDE [Concomitant]
  4. PLAVIX [Concomitant]
  5. FOSINOPRIL SODIUM [Concomitant]
  6. HYDROCHLOROTHIAZIDE [Concomitant]
  7. CRESTOR [Concomitant]
  8. ZETIA [Concomitant]
  9. NIASPAN [Concomitant]
  10. COUMADIN [Concomitant]

REACTIONS (2)
  - HEADACHE [None]
  - ORGAN FAILURE [None]
